FAERS Safety Report 9413374 (Version 1)
Quarter: 2013Q3

REPORT INFORMATION
  Report Type: Spontaneous
  Country: AU (occurrence: AU)
  Receive Date: 20130722
  Receipt Date: 20130722
  Transmission Date: 20140515
  Serious: Yes (Hospitalization)
  Sender: FDA-Public Use
  Company Number: AU-009507513-1307AUS009153

PATIENT
  Age: 2 Year
  Sex: Male

DRUGS (1)
  1. CLARATYNE [Suspect]
     Dosage: THERAP DOSE
     Route: 048
     Dates: start: 20090316

REACTIONS (5)
  - Apnoea [Unknown]
  - Chest pain [Unknown]
  - Cough [Unknown]
  - Aspiration [Unknown]
  - Accidental exposure to product by child [Unknown]
